FAERS Safety Report 6641656-2 (Version None)
Quarter: 2010Q1

REPORT INFORMATION
  Report Type: 
  Country: None (occurrence: None)
  Receive Date: 20100316
  Receipt Date: 20100304
  Transmission Date: 20100710
  Serious: Yes (Other)
  Sender: FDA-Public Use
  Company Number: US-1180622

PATIENT
  Age: 70 Year
  Sex: Female

DRUGS (7)
  1. BSS OPHTHALMIC SOLUTION [Suspect]
     Indication: CATARACT OPERATION
     Dosage: 500 ML INTRAOCULAR), (15ML INTRAOCULAR)
     Route: 031
     Dates: start: 20100121, end: 20100121
  2. BETADINE [Suspect]
     Indication: CATARACT OPERATION
     Dosage: OPHTHALMIC
     Route: 047
     Dates: start: 20100121, end: 20100121
  3. EPINEPHRINE [Concomitant]
  4. VISCOAT [Concomitant]
  5. PROVISC [Concomitant]
  6. VIAGMOX [Concomitant]
  7. PRED FORTE [Concomitant]

REACTIONS (1)
  - TOXIC ANTERIOR SEGMENT SYNDROME [None]
